FAERS Safety Report 8956663 (Version 2)
Quarter: 2012Q4

REPORT INFORMATION
  Report Type: 
  Country: US (occurrence: US)
  Receive Date: 20121210
  Receipt Date: 20121228
  Transmission Date: 20130627
  Serious: Yes (Death, Hospitalization)
  Sender: FDA-Public Use
  Company Number: PHEH2012US024167

PATIENT
  Age: 57 Year
  Sex: Female

DRUGS (3)
  1. TASIGNA [Suspect]
     Indication: CHRONIC MYELOID LEUKAEMIA
     Dosage: 300 mg, BID
     Route: 048
     Dates: start: 20120619
  2. HERCEPTIN [Concomitant]
     Indication: BREAST CANCER
     Dosage: UNK
     Route: 042
  3. HALAVEN [Concomitant]
     Indication: BREAST CANCER
     Dosage: UNK

REACTIONS (1)
  - Breast cancer metastatic [Fatal]
